FAERS Safety Report 20578263 (Version 1)
Quarter: 2022Q1

REPORT INFORMATION
  Report Type: Spontaneous
  Country: US (occurrence: None)
  Receive Date: 20220310
  Receipt Date: 20220310
  Transmission Date: 20220423
  Serious: Yes (Other)
  Sender: FDA-Public Use
  Company Number: None

PATIENT
  Age: 67 Year
  Sex: Male

DRUGS (14)
  1. NEORAL [Suspect]
     Active Substance: CYCLOSPORINE
     Indication: Liver transplant
     Dosage: FREQUENCY : TWICE A DAY;?
     Route: 048
     Dates: start: 20190301
  2. NORCO [Concomitant]
     Active Substance: ACETAMINOPHEN\HYDROCODONE BITARTRATE
  3. OXYCODONE [Concomitant]
     Active Substance: OXYCODONE
  4. ZOLPIDEM [Concomitant]
     Active Substance: ZOLPIDEM TARTRATE
  5. FAMOTIDINE [Concomitant]
     Active Substance: FAMOTIDINE
  6. ALLOPURINOL [Concomitant]
     Active Substance: ALLOPURINOL
  7. sodium chloride 1 gm [Concomitant]
  8. silver sulfadiazine 1% cream [Concomitant]
  9. ATENOLOL [Concomitant]
     Active Substance: ATENOLOL
  10. PROCHLORPERAZINE [Concomitant]
     Active Substance: PROCHLORPERAZINE
  11. PROLIA [Concomitant]
     Active Substance: DENOSUMAB
  12. DILTIAZEM [Concomitant]
     Active Substance: DILTIAZEM
  13. Zofran ODT 8mg [Concomitant]
  14. CARBOPLATIN [Concomitant]
     Active Substance: CARBOPLATIN

REACTIONS (1)
  - Skin cancer [None]

NARRATIVE: CASE EVENT DATE: 20210823
